FAERS Safety Report 4294516-9 (Version None)
Quarter: 2004Q1

REPORT INFORMATION
  Report Type: 
  Country: None (occurrence: None)
  Receive Date: 20040211
  Receipt Date: 20040130
  Transmission Date: 20041129
  Serious: Yes (Hospitalization)
  Sender: FDA-Public Use
  Company Number: ES-JNJFOC-20031201366

PATIENT
  Sex: Male

DRUGS (3)
  1. REMICADE [Suspect]
     Indication: RHEUMATOID ARTHRITIS
     Dosage: 3 MG/KG, INTRAVENOUS
     Route: 042
  2. ISONIAZID [Concomitant]
  3. STEROIDS () COTICOSTEROID NOS [Concomitant]

REACTIONS (3)
  - DISSEMINATED TUBERCULOSIS [None]
  - ENCEPHALITIS [None]
  - MENINGITIS TUBERCULOUS [None]
